FAERS Safety Report 8308668-4 (Version None)
Quarter: 2012Q2

REPORT INFORMATION
  Report Type: 
  Country: None (occurrence: None)
  Receive Date: 20120424
  Receipt Date: 20120418
  Transmission Date: 20120825
  Serious: No
  Sender: FDA-Public Use
  Company Number: US-PFIZER INC-2012097276

PATIENT
  Sex: Male

DRUGS (2)
  1. ZOLOFT [Suspect]
     Dosage: UNK
  2. EFFEXOR XR [Suspect]
     Dosage: 150 MG, UNK

REACTIONS (3)
  - TREMOR [None]
  - WITHDRAWAL SYNDROME [None]
  - DISTURBANCE IN ATTENTION [None]
